FAERS Safety Report 5777891-5 (Version None)
Quarter: 2008Q2

REPORT INFORMATION
  Report Type: 
  Country: None (occurrence: None)
  Receive Date: 20080618
  Receipt Date: 20080613
  Transmission Date: 20081010
  Serious: Yes (Hospitalization, Other)
  Sender: FDA-Public Use
  Company Number: US-MERCK-0806USA02718

PATIENT
  Age: 16 Year
  Sex: Female
  Weight: 85 kg

DRUGS (4)
  1. SINGULAIR [Suspect]
     Indication: ASTHMA EXERCISE INDUCED
     Route: 048
     Dates: start: 20060801, end: 20080301
  2. ADVAIR DISKUS 100/50 [Concomitant]
     Indication: ASTHMA
     Route: 065
     Dates: start: 20041101
  3. ALBUTEROL [Concomitant]
     Indication: ASTHMA
     Route: 065
     Dates: start: 20041101
  4. FORADIL [Concomitant]
     Indication: ASTHMA EXERCISE INDUCED
     Dates: start: 20061201

REACTIONS (1)
  - SUICIDE ATTEMPT [None]
